FAERS Safety Report 6322028-7 (Version None)
Quarter: 2009Q3

REPORT INFORMATION
  Report Type: 
  Country: None (occurrence: None)
  Receive Date: 20090814
  Receipt Date: 20090518
  Transmission Date: 20100115
  Serious: Yes (Hospitalization, Other)
  Sender: FDA-Public Use
  Company Number: 60588

PATIENT
  Age: 56 Year
  Sex: Male
  Weight: 94 kg

DRUGS (1)
  1. ETOPOSIDE [Suspect]
     Indication: ACUTE MYELOID LEUKAEMIA
     Dosage: 160MG
     Dates: start: 20080320

REACTIONS (1)
  - PNEUMONIA [None]
